FAERS Safety Report 8983272 (Version 1)
Quarter: 2012Q4

REPORT INFORMATION
  Report Type: 
  Country: IT (occurrence: IT)
  Receive Date: 20121224
  Receipt Date: 20121224
  Transmission Date: 20130627
  Serious: Yes (Disabling, Other)
  Sender: FDA-Public Use
  Company Number: PHHY2012IT117324

PATIENT
  Sex: Female

DRUGS (10)
  1. ZOMETA [Suspect]
     Indication: BREAST CANCER
     Dosage: UNK UKN, UNK
     Route: 042
     Dates: start: 20091115, end: 20111015
  2. BONDRONAT [Suspect]
     Indication: BREAST CANCER
     Dosage: 50 mg, daily
     Route: 048
     Dates: start: 20111101
  3. LANSOPRAZOL [Concomitant]
     Dosage: 30 mg, UNK
  4. SOLDESAM [Concomitant]
     Dosage: 32 drp, UNK
  5. PLASIL [Concomitant]
     Dosage: 1 DF, UNK
  6. CALCIUM + VITAMIN D3 [Concomitant]
     Dosage: UNK UKN, UNK
  7. TARGIN [Concomitant]
     Dosage: 2 DF, UNK
  8. ACTIQ [Concomitant]
     Dosage: 400 ug, PRN
  9. ENOXAPARIN [Concomitant]
     Dosage: UNK UKN, UNK
  10. KESSAR [Concomitant]
     Dosage: 20 mg, UNK
     Dates: start: 2008

REACTIONS (3)
  - Metastases to bone [Unknown]
  - Metastases to lung [Unknown]
  - Osteonecrosis [Not Recovered/Not Resolved]
